FAERS Safety Report 12960158 (Version 1)
Quarter: 2016Q4

REPORT INFORMATION
  Report Type: Spontaneous
  Country: US (occurrence: US)
  Receive Date: 20161119
  Receipt Date: 20161119
  Transmission Date: 20170207
  Serious: Yes (Death)
  Sender: FDA-Public Use
  Company Number: None

PATIENT
  Age: 16 Year
  Sex: Female
  Weight: 67 kg

DRUGS (1)
  1. BACTRIM [Suspect]
     Active Substance: SULFAMETHOXAZOLE\TRIMETHOPRIM
     Indication: ACNE

REACTIONS (9)
  - Rash [None]
  - Serum ferritin increased [None]
  - Fatigue [None]
  - Red blood cell sedimentation rate increased [None]
  - Liver function test increased [None]
  - Cytopenia [None]
  - Eosinophilic myocarditis [None]
  - Dyspnoea [None]
  - Cardiac arrest [None]

NARRATIVE: CASE EVENT DATE: 20151121
